FAERS Safety Report 20183673 (Version 2)
Quarter: 2021Q4

REPORT INFORMATION
  Report Type: Report from Study
  Country: US (occurrence: US)
  Receive Date: 20211214
  Receipt Date: 20211222
  Transmission Date: 20220303
  Serious: No
  Sender: FDA-Public Use
  Company Number: US-SUNOVION-2021SUN004615

PATIENT
  Age: 71 Year
  Sex: Male

DRUGS (1)
  1. KYNMOBI [Suspect]
     Active Substance: APOMORPHINE HYDROCHLORIDE
     Dosage: 25 MG
     Route: 060
     Dates: start: 20211116

REACTIONS (4)
  - Movement disorder [Unknown]
  - Dyskinesia [Unknown]
  - Hyperhidrosis [Unknown]
  - Somnolence [Unknown]

NARRATIVE: CASE EVENT DATE: 20211207
